FAERS Safety Report 9160733 (Version 1)
Quarter: 2013Q1

REPORT INFORMATION
  Report Type: Spontaneous
  Country: US (occurrence: None)
  Receive Date: 20130222
  Receipt Date: 20130222
  Transmission Date: 20140127
  Serious: Yes (Other)
  Sender: FDA-Public Use
  Company Number: AXC-2013-000057

PATIENT
  Age: 56 Year
  Sex: Male
  Weight: 77.3 kg

DRUGS (3)
  1. RECTIV [Suspect]
     Indication: PROCTALGIA
     Route: 054
     Dates: start: 20130209, end: 20130209
  2. RECTIV [Suspect]
     Indication: ANAL FISSURE
     Route: 054
     Dates: start: 20130209, end: 20130209
  3. HYDROCHLOROTHIAZIDE (HYDROCHLOROTHIAZIDE) UNKNOWN UNK TO UNK [Concomitant]

REACTIONS (3)
  - Presyncope [None]
  - Fall [None]
  - Head injury [None]
